FAERS Safety Report 12410928 (Version 1)
Quarter: 2016Q2

REPORT INFORMATION
  Report Type: Report from Study
  Country: US (occurrence: US)
  Receive Date: 20160527
  Receipt Date: 20160527
  Transmission Date: 20160815
  Serious: Yes (Other)
  Sender: FDA-Public Use
  Company Number: US-BAYER-2015-409214

PATIENT
  Age: 53 Year
  Sex: Male

DRUGS (2)
  1. NEXAVAR [Suspect]
     Active Substance: SORAFENIB
     Indication: HEPATOCELLULAR CARCINOMA
     Dosage: 400 MG, BID
     Route: 048
     Dates: start: 20150727
  2. NEXAVAR [Suspect]
     Active Substance: SORAFENIB
     Indication: HEPATOCELLULAR CARCINOMA
     Dosage: 400 MG, BID
     Route: 048

REACTIONS (23)
  - Abdominal pain [None]
  - Muscle spasms [None]
  - Hyperkeratosis [None]
  - Headache [None]
  - Drug dose omission [None]
  - Therapeutic embolisation [None]
  - Anxiety [None]
  - Decreased appetite [None]
  - Toxicity to various agents [None]
  - Hyperkeratosis [None]
  - Hypoaesthesia [None]
  - Blood pressure fluctuation [None]
  - Malaise [None]
  - Headache [None]
  - Vomiting [None]
  - Fatigue [None]
  - Nausea [None]
  - Blister [None]
  - Weight decreased [Not Recovered/Not Resolved]
  - Blood pressure increased [Not Recovered/Not Resolved]
  - Panic attack [None]
  - Asthenia [None]
  - Abdominal pain [None]

NARRATIVE: CASE EVENT DATE: 2015
